FAERS Safety Report 6503004-8 (Version None)
Quarter: 2009Q4

REPORT INFORMATION
  Report Type: 
  Country: None (occurrence: None)
  Receive Date: 20091217
  Receipt Date: 20091204
  Transmission Date: 20100525
  Serious: Yes (Death, Hospitalization, Other)
  Sender: FDA-Public Use
  Company Number: US-ELI_LILLY_AND_COMPANY-US200905000835

PATIENT
  Sex: Female

DRUGS (3)
  1. FORTEO [Suspect]
     Dosage: 20 UG, DAILY (1/D)
     Dates: start: 20090102
  2. FOSAMAX [Concomitant]
     Dosage: UNK, UNK
     Dates: start: 20000406, end: 20090101
  3. NEXIUM [Concomitant]
     Dosage: 40 MG, DAILY (1/D)

REACTIONS (11)
  - BLOOD OSMOLARITY DECREASED [None]
  - LUNG NEOPLASM MALIGNANT [None]
  - METABOLIC ACIDOSIS [None]
  - METASTASES TO BONE [None]
  - METASTASES TO CENTRAL NERVOUS SYSTEM [None]
  - METASTASES TO LIVER [None]
  - PNEUMONIA [None]
  - RENAL FAILURE ACUTE [None]
  - RESPIRATORY FAILURE [None]
  - SEPSIS [None]
  - SEPTIC SHOCK [None]
